FAERS Safety Report 4524598-8 (Version None)
Quarter: 2004Q4

REPORT INFORMATION
  Report Type: 
  Country: None (occurrence: None)
  Receive Date: 20041117
  Receipt Date: 20040920
  Transmission Date: 20050328
  Serious: Yes (Hospitalization, Other)
  Sender: FDA-Public Use
  Company Number: US-JNJFOC-20040906745

PATIENT
  Age: 52 Year
  Sex: Female

DRUGS (4)
  1. LEVAQUIN [Suspect]
     Indication: UPPER RESPIRATORY TRACT INFECTION
     Dosage: 500 MG, 1 IN 1 DAY, ORAL
     Route: 048
  2. LEVAQUIN [Suspect]
     Dosage: 500 MG, INTRAVENOUS
     Route: 042
  3. TYLENOL [Concomitant]
  4. SULFA (SULFA PLUS) [Concomitant]

REACTIONS (4)
  - HEPATOCELLULAR DAMAGE [None]
  - LEUKOPENIA [None]
  - PYREXIA [None]
  - RASH GENERALISED [None]
